FAERS Safety Report 9822818 (Version 1)
Quarter: 2014Q1

REPORT INFORMATION
  Report Type: Spontaneous
  Country: GB (occurrence: GB)
  Receive Date: 20140116
  Receipt Date: 20140116
  Transmission Date: 20141002
  Serious: Yes (Other)
  Sender: FDA-Public Use
  Company Number: GB-TEVA-455454ISR

PATIENT
  Age: 77 Year
  Sex: Female
  Weight: 66.67 kg

DRUGS (2)
  1. ATORVASTATIN [Suspect]
     Indication: BLOOD CHOLESTEROL INCREASED
     Route: 048
     Dates: start: 20131129, end: 20131213
  2. LANSOPRAZOLE [Concomitant]

REACTIONS (2)
  - Muscular weakness [Recovered/Resolved]
  - Constipation [Recovered/Resolved]
